FAERS Safety Report 7138718-2 (Version None)
Quarter: 2010Q4

REPORT INFORMATION
  Report Type: 
  Country: None (occurrence: None)
  Receive Date: 20101201
  Receipt Date: 20101201
  Transmission Date: 20110411
  Serious: Yes (Death)
  Sender: FDA-Public Use
  Company Number: None

PATIENT
  Age: 64 Year
  Sex: Male

DRUGS (6)
  1. REVLIMID [Suspect]
     Indication: AMYLOIDOSIS
     Dosage: 15MG DAILY 21D/28D ORALLY
     Route: 048
     Dates: start: 20090601, end: 20101101
  2. REVLIMID [Suspect]
     Indication: MULTIPLE MYELOMA
     Dosage: 15MG DAILY 21D/28D ORALLY
     Route: 048
     Dates: start: 20090601, end: 20101101
  3. DECADRON [Concomitant]
  4. LORAZEPAM [Concomitant]
  5. ASPIRIN [Concomitant]
  6. HYDROCHLOROTHIAZIDE [Concomitant]

REACTIONS (1)
  - DEATH [None]
